FAERS Safety Report 24199563 (Version 3)
Quarter: 2024Q4

REPORT INFORMATION
  Report Type: Spontaneous
  Country: FR (occurrence: FR)
  Receive Date: 20240812
  Receipt Date: 20241009
  Transmission Date: 20250115
  Serious: Yes (Hospitalization, Other)
  Sender: PFIZER
  Company Number: FR-PFIZER INC-PV202400102685

PATIENT
  Age: 9 Year
  Sex: Male

DRUGS (1)
  1. SOMATROGON [Suspect]
     Active Substance: SOMATROGON
     Indication: Growth hormone deficiency
     Dosage: UNK

REACTIONS (4)
  - MELAS syndrome [Unknown]
  - Mitochondrial cytopathy [Unknown]
  - Helicobacter infection [Unknown]
  - Blood thyroid stimulating hormone decreased [Unknown]
